FAERS Safety Report 7391911-6 (Version None)
Quarter: 2011Q2

REPORT INFORMATION
  Report Type: 
  Country: None (occurrence: None)
  Receive Date: 20110404
  Receipt Date: 20110325
  Transmission Date: 20111010
  Serious: Yes (Hospitalization)
  Sender: FDA-Public Use
  Company Number: FR-TEVA-273152ISR

PATIENT
  Sex: Female
  Weight: 60 kg

DRUGS (13)
  1. CEFIXIME [Concomitant]
     Indication: PYELONEPHRITIS
     Route: 048
     Dates: start: 20100929, end: 20101017
  2. LENALIDOMIDE (CC-5013) [Suspect]
     Route: 048
     Dates: start: 20101111, end: 20101201
  3. LERCANIDIPINE HYDROCHLORIDE [Concomitant]
     Indication: HYPERTENSION
     Route: 048
     Dates: start: 20060101
  4. FOSAVANCE [Concomitant]
     Indication: OSTEOPOROSIS
     Route: 048
     Dates: start: 19990101
  5. LEVOFLOXACIN [Concomitant]
     Indication: URINARY TRACT INFECTION
     Route: 048
  6. PROPAFENONE [Concomitant]
     Indication: SUPRAVENTRICULAR EXTRASYSTOLES
     Route: 048
     Dates: start: 20100128
  7. AUGMENTIN [Concomitant]
     Indication: TRACHEITIS
     Route: 048
     Dates: start: 20101026, end: 20101030
  8. LENALIDOMIDE (CC-5013) [Suspect]
     Indication: MULTIPLE MYELOMA
     Route: 048
     Dates: start: 20091228, end: 20101109
  9. AUGMENTIN [Concomitant]
     Indication: GASTROINTESTINAL HAEMORRHAGE
     Route: 042
     Dates: start: 20101117, end: 20101118
  10. DEXAMETHASONE [Suspect]
     Indication: MULTIPLE MYELOMA
     Route: 048
     Dates: start: 20091228, end: 20101109
  11. RILMENIDINE [Concomitant]
     Indication: HYPERTENSION
     Route: 048
     Dates: start: 20060101
  12. FLUVASTATIN [Concomitant]
     Indication: DYSLIPIDAEMIA
     Route: 048
     Dates: start: 19990101
  13. ACETYLSALICYLATE LYSINE [Concomitant]
     Indication: THROMBOSIS PROPHYLAXIS
     Route: 048
     Dates: start: 19720101

REACTIONS (1)
  - GASTROINTESTINAL HAEMORRHAGE [None]
